FAERS Safety Report 15576050 (Version 1)
Quarter: 2018Q4

REPORT INFORMATION
  Report Type: Spontaneous
  Country: US (occurrence: US)
  Receive Date: 20181029
  Receipt Date: 20181029
  Transmission Date: 20190205
  Serious: Yes (Life-Threatening, Disabling, Other)
  Sender: FDA-Public Use
  Company Number: None

PATIENT
  Age: 61 Year
  Sex: Female
  Weight: 114.31 kg

DRUGS (19)
  1. ULTRAM [Concomitant]
     Active Substance: TRAMADOL HYDROCHLORIDE
  2. ZOFRAN [Concomitant]
     Active Substance: ONDANSETRON HYDROCHLORIDE
  3. ZINC. [Concomitant]
     Active Substance: ZINC
  4. ALBUTEROL. [Concomitant]
     Active Substance: ALBUTEROL
  5. NITROGLYCERN 0.4MG TABLETS SL SUBSTITUTED FOR NITRO SHT 0.4 TABLETS 5L [Suspect]
     Active Substance: NITROGLYCERIN
     Indication: WOLFF-PARKINSON-WHITE SYNDROME
     Dosage: ?          QUANTITY:0.4 MG MILLIGRAM(S);OTHER FREQUENCY:5 MINS. 1 TAB, TON;?
     Route: 048
     Dates: start: 20180306, end: 20181017
  6. NITROGLYCERN 0.4MG TABLETS SL SUBSTITUTED FOR NITRO SHT 0.4 TABLETS 5L [Suspect]
     Active Substance: NITROGLYCERIN
     Indication: HIATUS HERNIA
     Dosage: ?          QUANTITY:0.4 MG MILLIGRAM(S);OTHER FREQUENCY:5 MINS. 1 TAB, TON;?
     Route: 048
     Dates: start: 20180306, end: 20181017
  7. PROTONIX [Concomitant]
     Active Substance: PANTOPRAZOLE SODIUM
  8. LASIX [Concomitant]
     Active Substance: FUROSEMIDE
  9. ZINC 50 MG TABLETS [Concomitant]
  10. TENORMIN [Concomitant]
     Active Substance: ATENOLOL
  11. CEFTIN [Concomitant]
     Active Substance: CEFUROXIME AXETIL
  12. VENTOLIN [Concomitant]
     Active Substance: ALBUTEROL SULFATE
  13. BUSPAR [Concomitant]
     Active Substance: BUSPIRONE HYDROCHLORIDE
  14. PREDNISONE. [Concomitant]
     Active Substance: PREDNISONE
  15. NITROGLYCERIN. [Concomitant]
     Active Substance: NITROGLYCERIN
  16. NITROGLYCERN 0.4MG TABLETS SL SUBSTITUTED FOR NITRO SHT 0.4 TABLETS 5L [Suspect]
     Active Substance: NITROGLYCERIN
     Indication: MUSCLE SPASMS
     Dosage: ?          QUANTITY:0.4 MG MILLIGRAM(S);OTHER FREQUENCY:5 MINS. 1 TAB, TON;?
     Route: 048
     Dates: start: 20180306, end: 20181017
  17. SINGULAIR [Concomitant]
     Active Substance: MONTELUKAST SODIUM
  18. ZYRTEC [Concomitant]
     Active Substance: CETIRIZINE HYDROCHLORIDE
  19. FLONASE [Concomitant]
     Active Substance: FLUTICASONE PROPIONATE

REACTIONS (2)
  - Palpitations [None]
  - Drug ineffective [None]

NARRATIVE: CASE EVENT DATE: 20180927
